FAERS Safety Report 17454089 (Version 1)
Quarter: 2020Q1

REPORT INFORMATION
  Report Type: Spontaneous
  Country: US (occurrence: US)
  Receive Date: 20200211
  Receipt Date: 20200211
  Transmission Date: 20200409
  Serious: No
  Sender: FDA-Public Use
  Company Number: None

PATIENT
  Age: 65 Year
  Sex: Male
  Weight: 105.23 kg

DRUGS (11)
  1. RANITIDINE 300MG TAB AMN [Suspect]
     Active Substance: RANITIDINE
     Indication: GASTROOESOPHAGEAL REFLUX DISEASE
     Dosage: ?          QUANTITY:2 PILLS;?
     Route: 048
     Dates: start: 20171212, end: 20191217
  2. JARDIANCE [Concomitant]
     Active Substance: EMPAGLIFLOZIN
  3. FISH OIL [Concomitant]
     Active Substance: FISH OIL
  4. FAMOTIDINE. [Concomitant]
     Active Substance: FAMOTIDINE
  5. VITAMIN D3 [Concomitant]
     Active Substance: CHOLECALCIFEROL
  6. MULIPLEVITAMIN [Concomitant]
  7. VITAMINS [Concomitant]
     Active Substance: VITAMINS
  8. AMLODIPINE [Concomitant]
     Active Substance: AMLODIPINE BESYLATE
  9. ALLOPURINOL. [Concomitant]
     Active Substance: ALLOPURINOL
  10. ONGLYZA [Concomitant]
     Active Substance: SAXAGLIPTIN HYDROCHLORIDE
  11. LEVOTHYROINE [Concomitant]

REACTIONS (2)
  - Abdominal pain [None]
  - Hernia [None]

NARRATIVE: CASE EVENT DATE: 20180828
